FAERS Safety Report 13428988 (Version 1)
Quarter: 2017Q2

REPORT INFORMATION
  Report Type: Spontaneous
  Country: US (occurrence: US)
  Receive Date: 20170411
  Receipt Date: 20170411
  Transmission Date: 20170830
  Serious: Yes (Hospitalization)
  Sender: FDA-Public Use
  Company Number: US-LUNDBECK-DKLU2028957

PATIENT
  Age: 56 Year
  Sex: Female

DRUGS (1)
  1. NORTHERA [Suspect]
     Active Substance: DROXIDOPA
     Indication: PRODUCT USED FOR UNKNOWN INDICATION
     Dosage: TITRATION COMPLETE
     Route: 065

REACTIONS (4)
  - Urinary tract infection [Unknown]
  - Cerebral disorder [Unknown]
  - Nephrolithiasis [Unknown]
  - Presyncope [Unknown]

NARRATIVE: CASE EVENT DATE: 20170328
